FAERS Safety Report 8592849-9 (Version None)
Quarter: 2012Q3

REPORT INFORMATION
  Report Type: 
  Country: None (occurrence: None)
  Receive Date: 20120814
  Receipt Date: 20120611
  Transmission Date: 20120928
  Serious: Yes (Other)
  Sender: FDA-Public Use
  Company Number: JP-009507513-1208JPN005638

PATIENT

DRUGS (17)
  1. PEG-INTRON [Suspect]
     Indication: HEPATITIS C
     Dosage: 1.5MCG/KG/WEEK
     Route: 058
     Dates: start: 20120409, end: 20120514
  2. TELAVIC [Suspect]
     Route: 048
     Dates: start: 20120411, end: 20120521
  3. ALLEGRA [Concomitant]
     Route: 048
     Dates: start: 20120514, end: 20120701
  4. DIFLAL [Concomitant]
     Dosage: DAILY DOSAGE UNKNOWN
     Route: 061
     Dates: start: 20120521, end: 20120701
  5. CLOBETASOL PROPIONATE [Concomitant]
     Indication: RASH
     Dosage: DAILY DOSAGE UNKNOWN
     Route: 051
     Dates: start: 20120507, end: 20120701
  6. DEPAS [Concomitant]
     Indication: DEPRESSION
     Route: 048
  7. TELAVIC [Suspect]
     Indication: HEPATITIS C
     Route: 048
     Dates: start: 20120409, end: 20120521
  8. MOTILIUM [Concomitant]
     Indication: NAUSEA
     Dosage: AS NEEDED 60MG/DAY.
     Route: 054
     Dates: start: 20120529, end: 20120611
  9. REBETOL [Suspect]
     Route: 048
     Dates: start: 20120426, end: 20120527
  10. PEG-INTRON [Suspect]
     Dosage: 1.1MCG/KG/WEEK
     Route: 058
     Dates: start: 20120521, end: 20120604
  11. XYZAL [Concomitant]
     Indication: RASH
     Route: 048
     Dates: start: 20120521, end: 20120701
  12. REBETOL [Suspect]
     Indication: HEPATITIS C
     Route: 048
     Dates: start: 20120409, end: 20120425
  13. REBETOL [Suspect]
     Route: 048
     Dates: start: 20120528, end: 20120611
  14. RINDERON V [Concomitant]
     Indication: RASH
     Dosage: DAILY DOSAGE UNKNOWN
     Route: 061
     Dates: start: 20120413, end: 20120506
  15. ALLEGRA [Concomitant]
     Indication: RASH
     Route: 048
     Dates: start: 20120507, end: 20120513
  16. ZOLPIDEM [Concomitant]
     Indication: INSOMNIA
     Dosage: AS NEEDED 10MG/DAY.
     Route: 048
     Dates: start: 20120521
  17. ALLOPURINOL [Concomitant]
     Indication: HYPERURICAEMIA
     Route: 048

REACTIONS (1)
  - RETINOPATHY [None]
